FAERS Safety Report 5027606-3 (Version None)
Quarter: 2006Q2

REPORT INFORMATION
  Report Type: 
  Country: None (occurrence: None)
  Receive Date: 20060428
  Receipt Date: 20060104
  Transmission Date: 20061013
  Serious: No
  Sender: FDA-Public Use
  Company Number: COT_0375_2006

PATIENT
  Age: 63 Year
  Sex: Male
  Weight: 68.9467 kg

DRUGS (2)
  1. VENTAVIS [Suspect]
     Indication: PULMONARY HYPERTENSION
     Dosage: 2.5 MG 6XD IH
     Dates: start: 20051220, end: 20060106
  2. PRILOSEC [Concomitant]

REACTIONS (3)
  - COUGH [None]
  - FATIGUE [None]
  - SENSATION OF HEAVINESS [None]
